FAERS Safety Report 14890098 (Version 1)
Quarter: 2018Q2

REPORT INFORMATION
  Report Type: Spontaneous
  Country: DE (occurrence: DE)
  Receive Date: 20180514
  Receipt Date: 20180514
  Transmission Date: 20180711
  Serious: Yes (Other)
  Sender: FDA-Public Use
  Company Number: DE-IPSEN BIOPHARMACEUTICALS, INC.-2018-06607

PATIENT
  Sex: Male
  Weight: 4.02 kg

DRUGS (4)
  1. MECASERMIN [Suspect]
     Active Substance: MECASERMIN
     Indication: OFF LABEL USE
     Dosage: ESCALATION FROM 50 MCG/KG  TO 250 MCG/KG
     Route: 065
  2. MECASERMIN [Suspect]
     Active Substance: MECASERMIN
     Indication: INSULIN RESISTANCE SYNDROME
     Route: 065
  3. MECASERMIN [Suspect]
     Active Substance: MECASERMIN
     Route: 065
  4. MECASERMIN [Suspect]
     Active Substance: MECASERMIN
     Route: 058

REACTIONS (5)
  - Hypoglycaemia [Recovering/Resolving]
  - Condition aggravated [Recovering/Resolving]
  - Product supply issue [Unknown]
  - Adenoidal hypertrophy [Recovering/Resolving]
  - Off label use [Unknown]
